FAERS Safety Report 4539474-4 (Version None)
Quarter: 2004Q4

REPORT INFORMATION
  Report Type: 
  Country: None (occurrence: None)
  Receive Date: 20041228
  Receipt Date: 20041215
  Transmission Date: 20050328
  Serious: Yes (Hospitalization)
  Sender: FDA-Public Use
  Company Number: 200414709FR

PATIENT
  Age: 43 Year
  Sex: Female

DRUGS (3)
  1. DI-ANTALVIC [Suspect]
     Route: 048
     Dates: start: 20040816, end: 20040816
  2. FLAGYL [Suspect]
     Dosage: DOSE UNIT: UNITS
     Route: 048
     Dates: start: 20040816, end: 20040816
  3. ROVAMYCINE [Concomitant]
     Route: 048
     Dates: start: 20040816, end: 20040823

REACTIONS (3)
  - DYSPNOEA [None]
  - ODYNOPHAGIA [None]
  - PHARYNGEAL OEDEMA [None]
